FAERS Safety Report 5239281-3 (Version None)
Quarter: 2007Q1

REPORT INFORMATION
  Report Type: 
  Country: None (occurrence: None)
  Receive Date: 20070216
  Receipt Date: 20070213
  Transmission Date: 20070707
  Serious: Yes (Hospitalization, Disabling, Other)
  Sender: FDA-Public Use
  Company Number: US-RB-005226-07

PATIENT
  Sex: Male

DRUGS (3)
  1. SUBOXONE [Suspect]
     Route: 060
     Dates: start: 20061129, end: 20061129
  2. METHADONE HCL [Concomitant]
     Dates: start: 20061130
  3. OXACILLIN [Concomitant]
     Route: 042

REACTIONS (5)
  - ANXIETY [None]
  - LIVER FUNCTION TEST ABNORMAL [None]
  - TREMOR [None]
  - URINARY TRACT INFECTION [None]
  - VISUAL DISTURBANCE [None]
